FAERS Safety Report 5908312-7 (Version None)
Quarter: 2008Q4

REPORT INFORMATION
  Report Type: 
  Country: None (occurrence: None)
  Receive Date: 20081002
  Receipt Date: 20081002
  Transmission Date: 20090506
  Serious: No
  Sender: FDA-Public Use
  Company Number: None

PATIENT
  Sex: Male
  Weight: 65.318 kg

DRUGS (3)
  1. LIBRIUM [Suspect]
     Indication: BIPOLAR I DISORDER
     Dosage: 10MG ONE TID PO
     Route: 048
     Dates: start: 19940727
  2. DEPAKOTE [Suspect]
     Indication: CONVULSION
     Dosage: 500MG ONE QID PO
     Route: 048
     Dates: start: 19940727
  3. ZANTAC [Suspect]
     Dosage: 150MG ONE BID PO
     Route: 048

REACTIONS (3)
  - DRUG EFFECT DECREASED [None]
  - THERAPEUTIC RESPONSE UNEXPECTED [None]
  - THERAPEUTIC RESPONSE UNEXPECTED WITH DRUG SUBSTITUTION [None]
